FAERS Safety Report 5626436-9 (Version None)
Quarter: 2008Q1

REPORT INFORMATION
  Report Type: 
  Country: None (occurrence: None)
  Receive Date: 20080214
  Receipt Date: 20080207
  Transmission Date: 20080703
  Serious: Yes (Other)
  Sender: FDA-Public Use
  Company Number: US-JNJFOC-20080202386

PATIENT
  Sex: Female
  Weight: 81.65 kg

DRUGS (4)
  1. DOXIL [Suspect]
     Indication: BREAST CANCER METASTATIC
     Route: 042
  2. VITAMIN D [Concomitant]
     Dosage: 50K UNITS BIMONTHLY
     Route: 048
  3. LEVOXYL [Concomitant]
     Dosage: DAILY
     Route: 048
  4. DILAUDID [Concomitant]
     Indication: PAIN
     Dosage: UP TO 6 PILLS PER DAY, TWICE A WEEK
     Route: 048

REACTIONS (2)
  - FEMUR FRACTURE [None]
  - RIB FRACTURE [None]
